FAERS Safety Report 8161687-3 (Version None)
Quarter: 2012Q1

REPORT INFORMATION
  Report Type: 
  Country: None (occurrence: None)
  Receive Date: 20120224
  Receipt Date: 20120210
  Transmission Date: 20120608
  Serious: Yes (Other)
  Sender: FDA-Public Use
  Company Number: TW-MYLANLABS-2012S1003335

PATIENT
  Age: 5 Decade
  Sex: Male

DRUGS (1)
  1. RISPERIDONE [Suspect]
     Indication: SCHIZOPHRENIA
     Route: 065
     Dates: start: 20010101, end: 20100101

REACTIONS (3)
  - GRANULOMA [None]
  - GYNAECOMASTIA [None]
  - HYPERPROLACTINAEMIA [None]
